FAERS Safety Report 5804772-0 (Version None)
Quarter: 2008Q3

REPORT INFORMATION
  Report Type: 
  Country: None (occurrence: None)
  Receive Date: 20080709
  Receipt Date: 20080701
  Transmission Date: 20090109
  Serious: Yes (Other)
  Sender: FDA-Public Use
  Company Number: FR-AMGEN-US285367

PATIENT
  Sex: Female

DRUGS (2)
  1. ENBREL [Suspect]
     Indication: RHEUMATOID ARTHRITIS
     Dosage: UNKNOWN
     Route: 058
     Dates: start: 20051101, end: 20070219
  2. METHOTREXATE [Suspect]
     Indication: RHEUMATOID ARTHRITIS
     Dosage: UNKNOWN
     Route: 048
     Dates: start: 20001201

REACTIONS (4)
  - ABDOMINAL PAIN [None]
  - CARCINOID TUMOUR OF THE SMALL BOWEL [None]
  - RADIOISOTOPE SCAN ABNORMAL [None]
  - WEIGHT DECREASED [None]
